FAERS Safety Report 6413340-1 (Version None)
Quarter: 2009Q4

REPORT INFORMATION
  Report Type: 
  Country: None (occurrence: None)
  Receive Date: 20091026
  Receipt Date: 20091016
  Transmission Date: 20100525
  Serious: Yes (Other)
  Sender: FDA-Public Use
  Company Number: DE-AMGEN-UK368083

PATIENT
  Sex: Female
  Weight: 65.5 kg

DRUGS (7)
  1. VECTIBIX [Suspect]
     Indication: COLORECTAL CANCER
     Route: 042
     Dates: start: 20091007, end: 20091007
  2. BISOPROLOL [Concomitant]
     Route: 048
     Dates: start: 20060101
  3. PANTOPRAZOLE SODIUM [Concomitant]
     Route: 048
     Dates: start: 20070101
  4. FLUOROURACIL [Concomitant]
     Dates: start: 20090101
  5. FOLINIC ACID [Concomitant]
     Dates: start: 20090101
  6. OXALIPLATIN [Concomitant]
     Dates: start: 20090101
  7. BEVACIZUMAB [Concomitant]
     Dates: start: 20090101

REACTIONS (6)
  - ABDOMINAL PAIN [None]
  - ASTHENIA [None]
  - DIARRHOEA [None]
  - HYPERSENSITIVITY [None]
  - NAUSEA [None]
  - VOMITING [None]
